FAERS Safety Report 20089724 (Version 1)
Quarter: 2021Q4

REPORT INFORMATION
  Report Type: Spontaneous
  Country: CA (occurrence: CA)
  Receive Date: 20211119
  Receipt Date: 20211119
  Transmission Date: 20220303
  Serious: Yes (Other)
  Sender: FDA-Public Use
  Company Number: CA-LUPIN PHARMACEUTICALS INC.-2021-22612

PATIENT
  Age: 52 Year
  Sex: Male

DRUGS (5)
  1. MORPHINE [Suspect]
     Active Substance: MORPHINE
     Indication: Drug use disorder
     Dosage: UNK SLOW RELEASE ORAL MORPHINE; WITH MAXIMUM DOSE OF MAXIMUM 1000 MG/DAY
     Route: 048
  2. BUPRENORPHINE\NALOXONE [Suspect]
     Active Substance: BUPRENORPHINE\NALOXONE
     Indication: Drug use disorder
     Dosage: UNK
     Route: 065
  3. METHADONE [Suspect]
     Active Substance: METHADONE HYDROCHLORIDE
     Indication: Drug use disorder
     Dosage: UNK-WITH MAXIMUM DOSE OF 180 MG/DAY
     Route: 065
  4. FENTANYL [Concomitant]
     Active Substance: FENTANYL
     Indication: Drug abuse
     Dosage: UNK INITIAL DOSE NOT STATED
     Route: 042
  5. FENTANYL [Concomitant]
     Active Substance: FENTANYL
     Dosage: 1/2 GRAM, QD AT THE TIME OF HOSPITALISATION
     Route: 042

REACTIONS (2)
  - Drug ineffective for unapproved indication [Unknown]
  - Product use in unapproved indication [Unknown]
